FAERS Safety Report 6741813-0 (Version None)
Quarter: 2010Q2

REPORT INFORMATION
  Report Type: 
  Country: None (occurrence: None)
  Receive Date: 20100526
  Receipt Date: 20100517
  Transmission Date: 20101027
  Serious: Yes (Other)
  Sender: FDA-Public Use
  Company Number: US-ROCHE-704541

PATIENT
  Age: 61 Year
  Sex: Male
  Weight: 90.7 kg

DRUGS (4)
  1. KLONOPIN [Suspect]
     Indication: TENSION
     Dosage: STRENGTH:1MG/4 DIVIDED DOSES.ADDITIONAL INDICATIONS:NERVOUSNESS, PANIC DISORDER, JAW CONDITION
     Route: 048
     Dates: start: 19941101, end: 20070101
  2. KLONOPIN [Suspect]
     Route: 048
  3. CLONAZEPAM (NON-ROCHE) [Suspect]
     Indication: TENSION
     Dosage: FREQUENCY:3-4 TIMES A DAY. ADDITIONAL INDICATIONS:NERVOUSNESS, PANIC DISORDER, JAW CONDITION
     Route: 048
     Dates: start: 20070101
  4. ADVIL LIQUI-GELS [Concomitant]

REACTIONS (5)
  - SOMNOLENCE [None]
  - TENSION [None]
  - TERMINAL STATE [None]
  - THINKING ABNORMAL [None]
  - TOOTH DISORDER [None]
